FAERS Safety Report 5484239-2 (Version None)
Quarter: 2007Q4

REPORT INFORMATION
  Report Type: 
  Country: None (occurrence: None)
  Receive Date: 20071009
  Receipt Date: 20070920
  Transmission Date: 20080405
  Serious: Yes (Other)
  Sender: FDA-Public Use
  Company Number: 8025547

PATIENT
  Age: 9 Year
  Sex: Male
  Weight: 33.3 kg

DRUGS (4)
  1. EQUASYM [Suspect]
     Indication: ATTENTION DEFICIT/HYPERACTIVITY DISORDER
     Dosage: 30 MG /D PO
     Route: 048
     Dates: start: 20061128, end: 20061218
  2. EQUASYM [Suspect]
     Indication: ATTENTION DEFICIT/HYPERACTIVITY DISORDER
     Dosage: 40 MG /D PO
     Route: 048
     Dates: start: 20061219, end: 20070422
  3. EQUASYM [Suspect]
     Indication: ATTENTION DEFICIT/HYPERACTIVITY DISORDER
     Dosage: 30 MG /D PO
     Route: 048
     Dates: start: 20070423
  4. MEDIKINET [Concomitant]
     Dosage: 35MG

REACTIONS (3)
  - ENCOPRESIS [None]
  - ENURESIS [None]
  - TIC [None]
